FAERS Safety Report 6445008-X (Version None)
Quarter: 2009Q4

REPORT INFORMATION
  Report Type: 
  Country: None (occurrence: None)
  Receive Date: 20091110
  Receipt Date: 20090930
  Transmission Date: 20100525
  Serious: No
  Sender: FDA-Public Use
  Company Number: 1000009182

PATIENT
  Age: 78 Year
  Sex: Female

DRUGS (3)
  1. SAVELLA [Suspect]
     Indication: FIBROMYALGIA
     Dosage: 12.5 MG (12.5 MG, 1 IN 1 D),ORAL
     Route: 048
     Dates: start: 20090801, end: 20090801
  2. PROPRANOLOL [Concomitant]
  3. VALIUM [Concomitant]

REACTIONS (8)
  - ASTHENIA [None]
  - BLISTER [None]
  - BLOOD PRESSURE INCREASED [None]
  - HEART RATE INCREASED [None]
  - NAUSEA [None]
  - PALPITATIONS [None]
  - PYREXIA [None]
  - VOMITING [None]
